FAERS Safety Report 19655231 (Version 1)
Quarter: 2021Q3

REPORT INFORMATION
  Report Type: Spontaneous
  Country: US (occurrence: US)
  Receive Date: 20210804
  Receipt Date: 20210804
  Transmission Date: 20211014
  Serious: Yes (Other)
  Sender: FDA-Public Use
  Company Number: US-ABBVIE-21K-163-4019331-00

PATIENT
  Sex: Female
  Weight: 140 kg

DRUGS (2)
  1. PFIZER?BIONTECH COVID?19 VACCINE [Concomitant]
     Active Substance: TOZINAMERAN
     Indication: COVID-19 IMMUNISATION
     Route: 030
  2. IMBRUVICA [Suspect]
     Active Substance: IBRUTINIB
     Indication: CHRONIC LYMPHOCYTIC LEUKAEMIA
     Route: 048
     Dates: start: 2020, end: 20200728

REACTIONS (4)
  - Osteoarthritis [Not Recovered/Not Resolved]
  - Grief reaction [Not Recovered/Not Resolved]
  - Osteoporosis [Unknown]
  - Spinal stenosis [Unknown]

NARRATIVE: CASE EVENT DATE: 2020
